FAERS Safety Report 21573350 (Version 1)
Quarter: 2022Q4

REPORT INFORMATION
  Report Type: Spontaneous
  Country: AU (occurrence: AU)
  Receive Date: 20221109
  Receipt Date: 20221109
  Transmission Date: 20230112
  Serious: Yes (Other)
  Sender: FDA-Public Use
  Company Number: AU-SLATE RUN PHARMACEUTICALS-22AU001413

PATIENT

DRUGS (7)
  1. GANCICLOVIR [Suspect]
     Active Substance: GANCICLOVIR
     Indication: Cytomegalovirus infection
     Dosage: UNK
     Route: 042
  2. FOSCARNET [Suspect]
     Active Substance: FOSCARNET
     Indication: Cytomegalovirus infection
     Dosage: UNK
     Route: 042
  3. I.V.-GLOBULIN [Concomitant]
     Indication: Combined immunodeficiency
     Route: 042
  4. I.V.-GLOBULIN [Concomitant]
     Indication: Multisystem inflammatory syndrome in children
  5. BACTRIM [Concomitant]
     Active Substance: SULFAMETHOXAZOLE\TRIMETHOPRIM
     Indication: Prophylaxis
  6. FLUCONAZOLE [Concomitant]
     Active Substance: FLUCONAZOLE
     Indication: Prophylaxis
  7. CYCLOSPORINE [Concomitant]
     Active Substance: CYCLOSPORINE
     Indication: Product used for unknown indication

REACTIONS (5)
  - Cytomegalovirus infection reactivation [Unknown]
  - COVID-19 [Unknown]
  - Multisystem inflammatory syndrome in children [Unknown]
  - Off label use [Unknown]
  - Treatment failure [Unknown]
